FAERS Safety Report 16799785 (Version 2)
Quarter: 2019Q3

REPORT INFORMATION
  Report Type: Spontaneous
  Country: DE (occurrence: DE)
  Receive Date: 20190912
  Receipt Date: 20190930
  Transmission Date: 20191005
  Serious: Yes (Hospitalization, Other)
  Sender: FDA-Public Use
  Company Number: DE-PFIZER INC-2019389908

PATIENT
  Age: 59 Year
  Sex: Male

DRUGS (3)
  1. KEYTRUDA [Suspect]
     Active Substance: PEMBROLIZUMAB
     Indication: NON-SMALL CELL LUNG CANCER
     Dosage: 200 MG, EVERY 3 WEEKS
     Dates: start: 20190803, end: 20190803
  2. CARBOPLATIN. [Suspect]
     Active Substance: CARBOPLATIN
     Indication: NON-SMALL CELL LUNG CANCER
     Dosage: UNK
     Dates: start: 20190803, end: 20190803
  3. PEMETREXED DISODIUM [Suspect]
     Active Substance: PEMETREXED DISODIUM
     Indication: NON-SMALL CELL LUNG CANCER
     Dosage: UNK
     Dates: start: 20190803, end: 20190803

REACTIONS (6)
  - Neutropenia [Unknown]
  - Joint swelling [Unknown]
  - Ear swelling [Unknown]
  - Thrombocytopenia [Unknown]
  - Rash [Unknown]
  - Pyrexia [Unknown]

NARRATIVE: CASE EVENT DATE: 201908
